FAERS Safety Report 10073294 (Version 2)
Quarter: 2014Q2

REPORT INFORMATION
  Report Type: Spontaneous
  Country: GB (occurrence: GB)
  Receive Date: 20140411
  Receipt Date: 20140507
  Transmission Date: 20141212
  Serious: Yes (Death, Life-Threatening, Hospitalization, Disabling, Other)
  Sender: FDA-Public Use
  Company Number: GB-GLAXOSMITHKLINE-B0983364A

PATIENT
  Age: 66 Year
  Sex: Male
  Weight: 115 kg

DRUGS (8)
  1. RELVAR ELLIPTA [Suspect]
     Indication: CHRONIC OBSTRUCTIVE PULMONARY DISEASE
     Dosage: 1PUFF PER DAY
     Route: 055
     Dates: start: 20140311, end: 2014
  2. ATORVASTATIN [Concomitant]
  3. CO-AMILOFRUSE [Concomitant]
  4. DOXAZOSIN [Concomitant]
  5. AVAMYS NASAL SPRAY [Concomitant]
  6. GABAPENTIN [Concomitant]
  7. RAMIPRIL [Concomitant]
  8. VENTOLIN [Concomitant]

REACTIONS (5)
  - Myocardial ischaemia [Fatal]
  - Volvulus [Fatal]
  - Infectious colitis [Fatal]
  - Abdominal pain upper [Unknown]
  - Abdominal pain upper [Unknown]
